FAERS Safety Report 11114572 (Version 2)
Quarter: 2015Q2

REPORT INFORMATION
  Report Type: Report from Study
  Country: US (occurrence: US)
  Receive Date: 20150515
  Receipt Date: 20150605
  Transmission Date: 20150821
  Serious: No
  Sender: FDA-Public Use
  Company Number: US-AMGEN-USASL2015044950

PATIENT
  Age: 73 Year
  Sex: Female

DRUGS (1)
  1. ENBREL [Suspect]
     Active Substance: ETANERCEPT
     Indication: PSORIASIS
     Dosage: 50 MG, QWK
     Route: 065
     Dates: start: 20140502

REACTIONS (5)
  - Axillary mass [Recovered/Resolved]
  - Pain [Recovered/Resolved]
  - Psoriasis [Recovered/Resolved]
  - Breast swelling [Recovered/Resolved]
  - Lymphadenopathy [Recovered/Resolved]

NARRATIVE: CASE EVENT DATE: 20150312
